FAERS Safety Report 18869112 (Version 1)
Quarter: 2021Q1

REPORT INFORMATION
  Report Type: Report from Study
  Country: US (occurrence: US)
  Receive Date: 20210209
  Receipt Date: 20210209
  Transmission Date: 20210420
  Serious: Yes (Death, Other)
  Sender: FDA-Public Use
  Company Number: US-ASTRAZENECA-2021A025683

PATIENT
  Sex: Female

DRUGS (1)
  1. TAGRISSO [Suspect]
     Active Substance: OSIMERTINIB
     Indication: NEOPLASM
     Route: 048
     Dates: start: 20210122

REACTIONS (7)
  - Decreased appetite [Unknown]
  - Death [Fatal]
  - Malignant neoplasm progression [Unknown]
  - Confusional state [Unknown]
  - Lethargy [Unknown]
  - Restlessness [Unknown]
  - Agitation [Unknown]
